FAERS Safety Report 6673254-9 (Version None)
Quarter: 2010Q2

REPORT INFORMATION
  Report Type: 
  Country: None (occurrence: None)
  Receive Date: 20100408
  Receipt Date: 20100405
  Transmission Date: 20101027
  Serious: Yes (Hospitalization)
  Sender: FDA-Public Use
  Company Number: US-ASTRAZENECA-2010SE14807

PATIENT
  Sex: Female

DRUGS (1)
  1. NEXIUM [Suspect]
     Route: 065
     Dates: start: 20080101

REACTIONS (5)
  - BACK PAIN [None]
  - LYMPHADENOPATHY [None]
  - MUSCULOSKELETAL PAIN [None]
  - SENSATION OF FOREIGN BODY [None]
  - STENT PLACEMENT [None]
